FAERS Safety Report 8898047 (Version 1)
Quarter: 2012Q4

REPORT INFORMATION
  Report Type: 
  Country: US (occurrence: US)
  Receive Date: 20121108
  Receipt Date: 20121108
  Transmission Date: 20130627
  Serious: No
  Sender: FDA-Public Use
  Company Number: US-AMGEN-USASP2012033007

PATIENT
  Age: 53 Year
  Sex: Female

DRUGS (6)
  1. ENBREL [Suspect]
     Indication: PRODUCT USED FOR UNKNOWN INDICATION
     Dosage: 50 mg, qwk
  2. NORVASC [Concomitant]
     Dosage: 5 mg, UNK
  3. SYNTHROID [Concomitant]
     Dosage: 150 mug, UNK
  4. LISINOPRIL [Concomitant]
     Dosage: 10 mg, UNK
  5. MELATONIN [Concomitant]
     Dosage: 1 mg, UNK
  6. MULTIVITAMINS PLUS IRON [Concomitant]
     Dosage: UNK

REACTIONS (3)
  - Endodontic procedure [Unknown]
  - Nasopharyngitis [Recovering/Resolving]
  - Tooth abscess [Unknown]
